FAERS Safety Report 7527592-8 (Version None)
Quarter: 2011Q2

REPORT INFORMATION
  Report Type: 
  Country: None (occurrence: None)
  Receive Date: 20110607
  Receipt Date: 20110603
  Transmission Date: 20111010
  Serious: No
  Sender: FDA-Public Use
  Company Number: US-PFIZER INC-2011121290

PATIENT
  Sex: Female
  Weight: 78.912 kg

DRUGS (2)
  1. CELEBREX [Suspect]
     Indication: ARTHRITIS
     Dosage: 200 MG, 2X/DAY
     Route: 048
     Dates: start: 20110518, end: 20110602
  2. EFFEXOR XR [Concomitant]
     Indication: HOT FLUSH
     Dosage: 150 MG, DAILY
     Route: 048

REACTIONS (1)
  - RASH [None]
